FAERS Safety Report 6327895-9 (Version None)
Quarter: 2009Q3

REPORT INFORMATION
  Report Type: 
  Country: None (occurrence: None)
  Receive Date: 20090825
  Receipt Date: 20080728
  Transmission Date: 20100115
  Serious: No
  Sender: FDA-Public Use
  Company Number: US-ABBOTT-08P-163-0466158-00

PATIENT
  Sex: Female

DRUGS (1)
  1. SYNTHROID [Suspect]
     Indication: HORMONE REPLACEMENT THERAPY
     Dates: start: 19930101

REACTIONS (5)
  - FEELING ABNORMAL [None]
  - HAIR TEXTURE ABNORMAL [None]
  - ROSACEA [None]
  - SKIN DISORDER [None]
  - WEIGHT INCREASED [None]
